FAERS Safety Report 24178220 (Version 10)
Quarter: 2025Q1

REPORT INFORMATION
  Report Type: Spontaneous
  Country: US (occurrence: US)
  Receive Date: 20240806
  Receipt Date: 20250129
  Transmission Date: 20250408
  Serious: No
  Sender: CSL BEHRING
  Company Number: US-BEH-2024176236

PATIENT
  Age: 18 Year
  Sex: Male
  Weight: 82.8 kg

DRUGS (7)
  1. HEMGENIX [Suspect]
     Active Substance: ETRANACOGENE DEZAPARVOVEC
     Indication: Factor IX deficiency
     Route: 042
     Dates: start: 20240712, end: 20240712
  2. HEMGENIX [Suspect]
     Active Substance: ETRANACOGENE DEZAPARVOVEC
     Indication: Factor IX deficiency
  3. TYLENOL [Concomitant]
     Active Substance: ACETAMINOPHEN
     Indication: Pyrexia
     Route: 048
     Dates: start: 20240721
  4. TYLENOL [Concomitant]
     Active Substance: ACETAMINOPHEN
     Indication: Pain
     Route: 048
     Dates: start: 20240724
  5. CREATINE [Concomitant]
     Active Substance: CREATINE
     Indication: Muscle strength abnormal
     Dosage: UNK, QD
  6. CREATINE [Concomitant]
     Active Substance: CREATINE
     Indication: Muscle mass
  7. VICKS NYQUIL [Concomitant]
     Active Substance: ACETAMINOPHEN\DEXTROMETHORPHAN HYDROBROMIDE\DOXYLAMINE SUCCINATE

REACTIONS (10)
  - Loss of therapeutic response [Unknown]
  - Therapeutic response decreased [Unknown]
  - Pain [Recovered/Resolved]
  - Pain [Recovered/Resolved]
  - Asthenia [Recovered/Resolved]
  - Malaise [Recovered/Resolved]
  - Pyrexia [Recovered/Resolved]
  - Headache [Recovered/Resolved]
  - Alanine aminotransferase increased [Unknown]
  - Contusion [Unknown]

NARRATIVE: CASE EVENT DATE: 20240720
